FAERS Safety Report 5122795-4 (Version None)
Quarter: 2006Q4

REPORT INFORMATION
  Report Type: 
  Country: None (occurrence: None)
  Receive Date: 20061005
  Receipt Date: 20061005
  Transmission Date: 20070319
  Serious: Yes (Life-Threatening, Hospitalization, Other)
  Sender: FDA-Public Use
  Company Number: None

PATIENT
  Age: 41 Year
  Sex: Female
  Weight: 95.2554 kg

DRUGS (1)
  1. YASMIN [Suspect]
     Indication: UTERINE HAEMORRHAGE
     Dosage: 1 PER DAY FOR 3 WKS/MONTH
     Dates: start: 20060520, end: 20060826

REACTIONS (1)
  - PULMONARY EMBOLISM [None]
